FAERS Safety Report 5229362-2 (Version None)
Quarter: 2007Q1

REPORT INFORMATION
  Report Type: 
  Country: None (occurrence: None)
  Receive Date: 20061201
  Receipt Date: 20060911
  Transmission Date: 20070707
  Serious: No
  Sender: FDA-Public Use
  Company Number: 2006PV021118

PATIENT
  Age: 68 Year
  Sex: Female
  Weight: 95.2554 kg

DRUGS (9)
  1. BYETTA [Suspect]
     Indication: DIABETES MELLITUS NON-INSULIN-DEPENDENT
     Dosage: 5 MCG;BID;SC
     Route: 058
     Dates: start: 20060901
  2. FORTAMET [Suspect]
     Indication: DIABETES MELLITUS NON-INSULIN-DEPENDENT
     Dosage: QD;PO
     Route: 048
     Dates: start: 20060901
  3. ACTOS /USA/ [Concomitant]
  4. GLUCOTROL XL [Concomitant]
  5. KEFLEX [Concomitant]
  6. GLIPIZIDE ER [Concomitant]
  7. GLIPIZIDE ^SHORT ACTING^ [Concomitant]
  8. GLIPIZIDE [Concomitant]
  9. FORTAMET [Concomitant]

REACTIONS (8)
  - ASTHENIA [None]
  - BLOOD GLUCOSE DECREASED [None]
  - BLOOD GLUCOSE INCREASED [None]
  - CHILLS [None]
  - DEHYDRATION [None]
  - DIARRHOEA [None]
  - HYPERHIDROSIS [None]
  - TREMOR [None]
